FAERS Safety Report 6871025-1 (Version None)
Quarter: 2010Q3

REPORT INFORMATION
  Report Type: 
  Country: None (occurrence: None)
  Receive Date: 20100723
  Receipt Date: 20100713
  Transmission Date: 20110219
  Serious: Yes (Death)
  Sender: FDA-Public Use
  Company Number: US-NOVOPROD-311462

PATIENT
  Age: 58 Year
  Sex: Female
  Weight: 50 kg

DRUGS (1)
  1. NOVOSEVEN RT [Suspect]
     Indication: OPERATIVE HAEMORRHAGE
     Dosage: 200 UG/KG X 2 DOSES
     Route: 042
     Dates: start: 20100614, end: 20100614

REACTIONS (1)
  - CEREBRAL ARTERY EMBOLISM [None]
